FAERS Safety Report 21617895 (Version 1)
Quarter: 2022Q4

REPORT INFORMATION
  Report Type: Report from Study
  Country: US (occurrence: US)
  Receive Date: 20221119
  Receipt Date: 20221119
  Transmission Date: 20230113
  Serious: No
  Sender: FDA-Public Use
  Company Number: US-ABBVIE-4172229

PATIENT
  Sex: Male

DRUGS (2)
  1. SKYRIZI [Suspect]
     Active Substance: RISANKIZUMAB-RZAA
     Indication: Product used for unknown indication
     Route: 058
     Dates: start: 20220920
  2. Covid-19 vaccine [Concomitant]
     Indication: COVID-19 immunisation
     Dosage: TIME INTERVAL: TOTAL
     Route: 030

REACTIONS (3)
  - Malaise [Not Recovered/Not Resolved]
  - Pruritus [Not Recovered/Not Resolved]
  - Haemorrhage [Not Recovered/Not Resolved]
